FAERS Safety Report 11382698 (Version 1)
Quarter: 2015Q3

REPORT INFORMATION
  Report Type: Spontaneous
  Country: US (occurrence: US)
  Receive Date: 20150811
  Receipt Date: 20150811
  Transmission Date: 20151125
  Serious: No
  Sender: FDA-Public Use
  Company Number: US-ELI_LILLY_AND_COMPANY-US200905001187

PATIENT
  Age: 63 Year
  Sex: Male

DRUGS (3)
  1. CIALIS [Suspect]
     Active Substance: TADALAFIL
     Dosage: UNK, OTHER
     Route: 065
  2. CIALIS [Suspect]
     Active Substance: TADALAFIL
     Dosage: 5 MG, DAILY (1/D)
     Route: 065
     Dates: start: 20090319
  3. CIALIS [Suspect]
     Active Substance: TADALAFIL
     Dosage: UNK, DAILY (1/D)
     Route: 065
     Dates: start: 200812

REACTIONS (3)
  - Dizziness [Unknown]
  - Therapeutic product ineffective [Unknown]
  - Therapeutic response delayed [Unknown]
